FAERS Safety Report 8793776 (Version 1)
Quarter: 2012Q4

REPORT INFORMATION
  Report Type: Report from Study
  Country: US (occurrence: US)
  Receive Date: 20120917
  Receipt Date: 20120917
  Transmission Date: 20130627
  Serious: Yes (Other)
  Sender: FDA-Public Use
  Company Number: US-ROCHE-1123955

PATIENT
  Sex: Female
  Weight: 51.3 kg

DRUGS (2)
  1. XELODA [Suspect]
     Indication: BREAST CANCER METASTATIC
     Dosage: 2 pills
     Route: 048
     Dates: start: 20110808, end: 2011
  2. XELODA [Suspect]
     Dosage: 1 pills
     Route: 048
     Dates: start: 20110808, end: 2011

REACTIONS (3)
  - Extremity necrosis [Unknown]
  - Extremity necrosis [Unknown]
  - Diarrhoea [Unknown]
